FAERS Safety Report 9672160 (Version 1)
Quarter: 2013Q4

REPORT INFORMATION
  Report Type: Spontaneous
  Country: US (occurrence: US)
  Receive Date: 20131106
  Receipt Date: 20131106
  Transmission Date: 20140711
  Serious: No
  Sender: FDA-Public Use
  Company Number: US-ENDO PHARMACEUTICALS INC.-HCDA20130014

PATIENT
  Age: 52 Year
  Sex: Female
  Weight: 93.07 kg

DRUGS (1)
  1. HYDROCODONE/ACETAMINOPHEN TABLETS 10MG/500MG [Suspect]
     Indication: PAIN
     Dosage: 10/500 MG
     Route: 048
     Dates: start: 201211, end: 2012

REACTIONS (1)
  - Rash [Recovering/Resolving]
